FAERS Safety Report 9400240 (Version 5)
Quarter: 2013Q4

REPORT INFORMATION
  Report Type: Report from Study
  Country: TR (occurrence: TR)
  Receive Date: 20130715
  Receipt Date: 20131216
  Transmission Date: 20140711
  Serious: Yes (Hospitalization)
  Sender: FDA-Public Use
  Company Number: TR-NOVOPROD-382322

PATIENT
  Age: 74 Year
  Sex: Female
  Weight: 102 kg

DRUGS (2)
  1. LIRAGLUTIDE FLEXPEN [Suspect]
     Indication: TYPE 2 DIABETES MELLITUS
     Dosage: 1.2 MG, QD
     Route: 058
     Dates: start: 20120322, end: 20130703
  2. HUMALOG MIX [Concomitant]
     Indication: TYPE 2 DIABETES MELLITUS
     Dosage: 38 U, QD
     Dates: start: 20111215, end: 20130626

REACTIONS (2)
  - Cholecystitis acute [Recovered/Resolved]
  - Hyperglycaemia [Recovered/Resolved]
